FAERS Safety Report 24135676 (Version 1)
Quarter: 2024Q3

REPORT INFORMATION
  Report Type: Spontaneous
  Country: IN (occurrence: IN)
  Receive Date: 20240725
  Receipt Date: 20240725
  Transmission Date: 20241016
  Serious: Yes (Hospitalization, Other)
  Sender: ZYDUS PHARM
  Company Number: IN-CADILA HEALTHCARE LIMITED-IN-ZYDUS-109753

PATIENT

DRUGS (3)
  1. TRAMADOL [Suspect]
     Active Substance: TRAMADOL\TRAMADOL HYDROCHLORIDE
     Indication: Procedural pain
     Dosage: 300 MILLIGRAM, QD
     Route: 030
  2. TRAMADOL [Suspect]
     Active Substance: TRAMADOL\TRAMADOL HYDROCHLORIDE
     Dosage: UNK
     Route: 042
  3. TRAMADOL [Suspect]
     Active Substance: TRAMADOL\TRAMADOL HYDROCHLORIDE
     Dosage: 400 MILLIGRAM
     Route: 042

REACTIONS (9)
  - Galactorrhoea [Unknown]
  - Abdominal pain [Unknown]
  - Drug dependence [Unknown]
  - Drug tolerance [Unknown]
  - Nausea [Unknown]
  - Vomiting [Unknown]
  - Withdrawal syndrome [Unknown]
  - Drug abuse [Unknown]
  - Prescription drug used without a prescription [Unknown]
